FAERS Safety Report 7367372-X (Version None)
Quarter: 2011Q1

REPORT INFORMATION
  Report Type: 
  Country: None (occurrence: None)
  Receive Date: 20110322
  Receipt Date: 20110317
  Transmission Date: 20110831
  Serious: Yes (Other)
  Sender: FDA-Public Use
  Company Number: US-BRISTOL-MYERS SQUIBB COMPANY-15615214

PATIENT
  Age: 65 Year
  Sex: Male

DRUGS (13)
  1. COLACE [Concomitant]
     Dosage: 1DF=1 UNIT NOT MENTIONED
  2. COUMADIN [Suspect]
     Dosage: 2.5 MG,STR ON UNK DATE-INTRP ON 27FEB11
  3. REVLIMID [Suspect]
     Indication: AMYLOIDOSIS
     Dosage: 15MG,JAN11-UNK,FEB11-INTRP ON 24FEB11,
     Route: 048
     Dates: start: 20110101
  4. CRESTOR [Concomitant]
  5. XANAX [Concomitant]
     Dosage: 1/2-1 TID
  6. DIFLUCAN [Suspect]
     Dates: start: 20100501
  7. COREG [Concomitant]
  8. PHOSLO [Concomitant]
  9. ZOLOFT [Concomitant]
  10. LASIX [Concomitant]
  11. HYDRALAZINE [Concomitant]
  12. CARDURA [Concomitant]
  13. DEXAMETHASONE [Concomitant]
     Dates: start: 20100501

REACTIONS (1)
  - PLATELET COUNT DECREASED [None]
